FAERS Safety Report 5991191-X (Version None)
Quarter: 2008Q4

REPORT INFORMATION
  Report Type: 
  Country: None (occurrence: None)
  Receive Date: 20081202
  Receipt Date: 20080114
  Transmission Date: 20090506
  Serious: Yes (Disabling)
  Sender: FDA-Public Use
  Company Number: WAES 0705USA01547

PATIENT
  Age: 60 Year
  Sex: Female
  Weight: 70.7611 kg

DRUGS (5)
  1. FOSAMAX [Suspect]
     Indication: OSTEOPENIA
     Dosage: 70 MG/WKY/PO
     Route: 048
     Dates: start: 20011201, end: 20070401
  2. LIPITOR [Concomitant]
  3. LOTREL [Concomitant]
  4. ONE SOURCE [Concomitant]
  5. ASPIRIN [Concomitant]

REACTIONS (8)
  - ADVERSE EVENT [None]
  - DENTAL CARIES [None]
  - GINGIVAL PAIN [None]
  - HYPOAESTHESIA ORAL [None]
  - JAW DISORDER [None]
  - PAIN IN JAW [None]
  - RESORPTION BONE INCREASED [None]
  - TOOTH ABSCESS [None]
